FAERS Safety Report 11050413 (Version 1)
Quarter: 2015Q2

REPORT INFORMATION
  Report Type: Spontaneous
  Country: FR (occurrence: FR)
  Receive Date: 20150421
  Receipt Date: 20150421
  Transmission Date: 20150821
  Serious: Yes (Hospitalization)
  Sender: FDA-Public Use
  Company Number: FR-009507513-1504FRA018072

PATIENT
  Age: 74 Year
  Sex: Female

DRUGS (9)
  1. AERIUS [Suspect]
     Active Substance: DESLORATADINE
     Dosage: UNK
     Route: 048
     Dates: end: 201503
  2. CRESTOR [Suspect]
     Active Substance: ROSUVASTATIN CALCIUM
     Dosage: 5 MG, QD
     Route: 048
     Dates: end: 201503
  3. AMIODARONE [Suspect]
     Active Substance: AMIODARONE
     Dosage: 2 DF, QD
     Route: 048
     Dates: start: 201412, end: 201503
  4. LASILIX [Concomitant]
     Active Substance: FUROSEMIDE
     Dosage: 40 MG/DAY
  5. PERINDOPRIL [Concomitant]
     Active Substance: PERINDOPRIL
     Dosage: 8 MG, QD
  6. AMIODARONE [Suspect]
     Active Substance: AMIODARONE
     Dosage: UNK
     Dates: start: 2011, end: 201412
  7. SINGULAIR [Suspect]
     Active Substance: MONTELUKAST SODIUM
     Dosage: 1 DF, QD
     Route: 048
     Dates: end: 201503
  8. SERETIDE [Concomitant]
     Active Substance: FLUTICASONE FUROATE\SALMETEROL XINAFOATE
     Dosage: 500, BID
  9. PRADAXA [Concomitant]
     Active Substance: DABIGATRAN ETEXILATE MESYLATE
     Dosage: 150 MG, BID

REACTIONS (1)
  - Lung disorder [Not Recovered/Not Resolved]

NARRATIVE: CASE EVENT DATE: 20150315
